FAERS Safety Report 4467862-3 (Version None)
Quarter: 2004Q3

REPORT INFORMATION
  Report Type: 
  Country: None (occurrence: None)
  Receive Date: 20040929
  Receipt Date: 20040913
  Transmission Date: 20050211
  Serious: Yes (Other)
  Sender: FDA-Public Use
  Company Number: 239255

PATIENT
  Age: 50 Year
  Sex: Male
  Weight: 107 kg

DRUGS (2)
  1. NOVOSEVEN [Suspect]
     Indication: HAEMORRHAGE
     Dosage: IN TOTAL 9.6 MG, INTRAVENOUS
     Route: 042
     Dates: start: 20031227, end: 20031228
  2. HAEMATE P (FACTOR VIII (ANTIHAEMOPHILIC FACTOR) ) [Concomitant]

REACTIONS (1)
  - MYOCARDIAL INFARCTION [None]
